FAERS Safety Report 10607622 (Version 1)
Quarter: 2014Q4

REPORT INFORMATION
  Report Type: Report from Study
  Country: US (occurrence: US)
  Receive Date: 20141125
  Receipt Date: 20141125
  Transmission Date: 20150529
  Serious: No
  Sender: FDA-Public Use
  Company Number: US-B.I. PHARMACEUTICALS,INC./RIDGEFIELD-2014-BI-55714BI

PATIENT
  Age: 32 Year
  Sex: Female

DRUGS (6)
  1. VIRAMUNE [Suspect]
     Active Substance: NEVIRAPINE
     Indication: ANTIVIRAL TREATMENT
     Dosage: DAILY DOSE: 2 TABS/CAPS
     Route: 048
  2. COMBIVIR [Concomitant]
     Active Substance: LAMIVUDINE\ZIDOVUDINE
     Indication: ANTIVIRAL TREATMENT
     Dosage: DAILY DOSE: 2 TABS/CAPS
     Route: 048
  3. RETROVIR [Concomitant]
     Active Substance: ZIDOVUDINE
     Indication: ANTIVIRAL TREATMENT
     Dosage: 784 MG
     Route: 042
     Dates: start: 20130419, end: 20130419
  4. BETAMETHASONE [Concomitant]
     Active Substance: BETAMETHASONE
     Indication: PRODUCT USED FOR UNKNOWN INDICATION
     Route: 065
  5. FLU VACCINE [Concomitant]
     Active Substance: INFLUENZA VIRUS VACCINE
     Indication: PRODUCT USED FOR UNKNOWN INDICATION
     Route: 065
  6. METRONIDAZOLE. [Concomitant]
     Active Substance: METRONIDAZOLE
     Indication: PRODUCT USED FOR UNKNOWN INDICATION
     Route: 065

REACTIONS (1)
  - Trichomoniasis [Unknown]
